FAERS Safety Report 8401849 (Version 2)
Quarter: 2012Q4

REPORT INFORMATION
  Report Type: 
  Country: US (occurrence: US)
  Receive Date: 20120213
  Receipt Date: 20120919
  Transmission Date: 20130627
  Serious: No
  Sender: FDA-Public Use
  Company Number: US-BIOGENIDEC-2012BI004654

PATIENT
  Age: 39 None
  Sex: Female

DRUGS (2)
  1. AVONEX [Suspect]
     Indication: MULTIPLE SCLEROSIS
     Route: 030
     Dates: start: 20000324, end: 2003
  2. AVONEX [Suspect]
     Indication: MULTIPLE SCLEROSIS
     Route: 030
     Dates: start: 2003

REACTIONS (19)
  - Tremor [Recovered/Resolved]
  - Multiple sclerosis [Not Recovered/Not Resolved]
  - Ankle fracture [Recovered/Resolved]
  - Diplopia [Recovered/Resolved]
  - Strabismus [Recovered/Resolved]
  - Balance disorder [Not Recovered/Not Resolved]
  - Vein disorder [Not Recovered/Not Resolved]
  - Central nervous system lesion [Unknown]
  - Tinnitus [Not Recovered/Not Resolved]
  - Restless legs syndrome [Not Recovered/Not Resolved]
  - Myalgia [Not Recovered/Not Resolved]
  - Affect lability [Recovered/Resolved]
  - Injection site pain [Recovered/Resolved]
  - Depression [Not Recovered/Not Resolved]
  - Suicidal ideation [Recovered/Resolved]
  - Nausea [Recovered/Resolved]
  - Confusional state [Not Recovered/Not Resolved]
  - Muscle spasticity [Not Recovered/Not Resolved]
  - Muscle tightness [Not Recovered/Not Resolved]
